FAERS Safety Report 7593267-2 (Version None)
Quarter: 2011Q3

REPORT INFORMATION
  Report Type: 
  Country: None (occurrence: None)
  Receive Date: 20110706
  Receipt Date: 20110627
  Transmission Date: 20111222
  Serious: Yes (Death)
  Sender: FDA-Public Use
  Company Number: JP-GENZYME-THYM-1002486

PATIENT
  Sex: Male
  Weight: 57 kg

DRUGS (8)
  1. FILGRASTIM [Concomitant]
     Indication: APLASTIC ANAEMIA
     Dosage: 300 MCG, UNK
     Route: 042
     Dates: start: 20110305, end: 20110513
  2. CYCLOSPORINE [Concomitant]
     Indication: APLASTIC ANAEMIA
     Dosage: 200 MG, QD
     Route: 048
     Dates: start: 20110509, end: 20110517
  3. SOLU-MEDROL [Concomitant]
     Indication: APLASTIC ANAEMIA
     Dosage: UNK
     Route: 065
     Dates: start: 20110509, end: 20110513
  4. POLARAMINE [Concomitant]
     Indication: APLASTIC ANAEMIA
     Dosage: UNK
     Route: 065
     Dates: start: 20110509, end: 20110513
  5. PLATELETS [Concomitant]
     Indication: PRODUCT USED FOR UNKNOWN INDICATION
     Dosage: UNK
     Route: 065
     Dates: start: 20110413, end: 20110513
  6. ADRENOCORTICAL HORMONE [Concomitant]
     Indication: PREMEDICATION
     Dosage: UNK
     Route: 065
     Dates: start: 20110509
  7. THYMOGLOBULIN [Suspect]
     Indication: APLASTIC ANAEMIA
     Dosage: 3.5 MG/KG, QD
     Route: 042
     Dates: start: 20110509, end: 20110513
  8. ANTIHISTAMINES [Concomitant]
     Indication: PREMEDICATION
     Dosage: UNK
     Route: 065
     Dates: start: 20110509

REACTIONS (2)
  - RESPIRATORY FAILURE [None]
  - APLASTIC ANAEMIA [None]
